FAERS Safety Report 24114428 (Version 3)
Quarter: 2025Q1

REPORT INFORMATION
  Report Type: Spontaneous
  Country: IN (occurrence: IN)
  Receive Date: 20240720
  Receipt Date: 20250121
  Transmission Date: 20250408
  Serious: Yes (Other)
  Sender: RANBAXY
  Company Number: IN-SUN PHARMACEUTICAL INDUSTRIES LTD-2024R1-457334

PATIENT
  Age: 31 Year
  Sex: Male

DRUGS (6)
  1. DEXAMETHASONE [Suspect]
     Active Substance: DEXAMETHASONE
     Indication: Weight increased
     Route: 065
  2. DEXAMETHASONE [Suspect]
     Active Substance: DEXAMETHASONE
     Indication: Muscle mass
     Route: 065
  3. DEXAMETHASONE [Suspect]
     Active Substance: DEXAMETHASONE
     Indication: General physical condition abnormal
  4. CYPROHEPTADINE [Suspect]
     Active Substance: CYPROHEPTADINE
     Indication: Weight increased
     Route: 065
  5. CYPROHEPTADINE [Suspect]
     Active Substance: CYPROHEPTADINE
     Indication: Muscle mass
     Route: 065
  6. CYPROHEPTADINE [Suspect]
     Active Substance: CYPROHEPTADINE
     Indication: General physical condition abnormal

REACTIONS (10)
  - Drug dependence [Unknown]
  - Withdrawal syndrome [Unknown]
  - Tremor [Unknown]
  - Mood swings [Unknown]
  - Insomnia [Unknown]
  - Decreased appetite [Unknown]
  - Weight decreased [Unknown]
  - Diarrhoea [Unknown]
  - Anxiety [Unknown]
  - Body fat disorder [Unknown]
